FAERS Safety Report 7527991-4 (Version None)
Quarter: 2011Q2

REPORT INFORMATION
  Report Type: 
  Country: None (occurrence: None)
  Receive Date: 20110607
  Receipt Date: 20040305
  Transmission Date: 20111010
  Serious: Yes (Death)
  Sender: FDA-Public Use
  Company Number: PHNR2004AU00701

PATIENT
  Sex: Male

DRUGS (3)
  1. MIRTAZAPINE [Concomitant]
     Dosage: 30 MG, NOCTE
  2. CLOZARIL [Suspect]
     Dosage: 375 MG, QD
     Route: 048
     Dates: start: 19940628, end: 20040224
  3. DIAZEPAM [Concomitant]
     Dosage: 2 MG, NOCTE

REACTIONS (1)
  - HEAT ILLNESS [None]
